FAERS Safety Report 8550415 (Version 4)
Quarter: 2015Q1

REPORT INFORMATION
  Report Type: Spontaneous
  Country: US (occurrence: US)
  Receive Date: 20120507
  Receipt Date: 20150217
  Transmission Date: 20150721
  Serious: Yes (Disabling, Other)
  Sender: FDA-Public Use
  Company Number: US-MERCK-1204USA04451

PATIENT
  Sex: Male
  Weight: 75.28 kg

DRUGS (4)
  1. PROSCAR [Suspect]
     Active Substance: FINASTERIDE
     Indication: ANDROGENETIC ALOPECIA
     Dosage: 5 MG, 1/4 TABLET QD
     Route: 048
     Dates: start: 20020405, end: 20110101
  2. PROSCAR [Suspect]
     Active Substance: FINASTERIDE
     Dosage: 5 MG, QD
     Route: 048
     Dates: start: 20041021
  3. FINASTERIDE. [Suspect]
     Active Substance: FINASTERIDE
     Indication: ANDROGENETIC ALOPECIA
     Dosage: UNK
     Route: 048
     Dates: start: 2006
  4. PROPECIA [Suspect]
     Active Substance: FINASTERIDE
     Indication: ANDROGENETIC ALOPECIA
     Dosage: 1 MG, QD
     Route: 048
     Dates: start: 20000120, end: 20110101

REACTIONS (42)
  - Albumin urine [Unknown]
  - Hyposmia [Not Recovered/Not Resolved]
  - Ageusia [Unknown]
  - Drug administration error [Unknown]
  - Mood swings [Unknown]
  - Surgery [Unknown]
  - Hyperlipidaemia [Unknown]
  - Arthroscopic surgery [Unknown]
  - Drug administration error [Unknown]
  - Anxiety [Not Recovered/Not Resolved]
  - Depression [Not Recovered/Not Resolved]
  - Ejaculation failure [Unknown]
  - Type 2 diabetes mellitus [Not Recovered/Not Resolved]
  - Gastritis [Not Recovered/Not Resolved]
  - Deafness neurosensory [Unknown]
  - Tinnitus [Unknown]
  - Androgen deficiency [Unknown]
  - Sexual dysfunction [Not Recovered/Not Resolved]
  - Iron deficiency anaemia [Unknown]
  - Hypogonadism [Unknown]
  - Astigmatism [Unknown]
  - Presbyopia [Unknown]
  - Shoulder operation [Unknown]
  - Blood thyroid stimulating hormone increased [Unknown]
  - Nocturia [Unknown]
  - Wrong technique in drug usage process [Unknown]
  - Anaemia [Unknown]
  - Rhinoplasty [Unknown]
  - Erectile dysfunction [Recovered/Resolved]
  - Blepharitis [Unknown]
  - Vertebral lesion [Unknown]
  - Cognitive disorder [Not Recovered/Not Resolved]
  - Ejaculation disorder [Unknown]
  - Libido decreased [Recovering/Resolving]
  - Sinus congestion [Unknown]
  - Mental impairment [Unknown]
  - Haemorrhoids [Not Recovered/Not Resolved]
  - Hypertension [Unknown]
  - Dyslipidaemia [Unknown]
  - Fatigue [Unknown]
  - Osteopenia [Unknown]
  - Rib deformity [Unknown]

NARRATIVE: CASE EVENT DATE: 20020405
